FAERS Safety Report 21580634 (Version 2)
Quarter: 2022Q4

REPORT INFORMATION
  Report Type: Spontaneous
  Country: FR (occurrence: FR)
  Receive Date: 20221111
  Receipt Date: 20221117
  Transmission Date: 20230112
  Serious: Yes (Hospitalization, Other)
  Sender: FDA-Public Use
  Company Number: FR-AstraZeneca-2022A367387

PATIENT
  Age: 0 Year
  Sex: Male
  Weight: 2 kg

DRUGS (2)
  1. SYNAGIS [Suspect]
     Active Substance: PALIVIZUMAB
     Indication: Antiviral prophylaxis
     Dosage: 37 MG
     Dates: start: 20221024
  2. SYNAGIS [Suspect]
     Active Substance: PALIVIZUMAB
     Dosage: 37 MG
     Dates: start: 20221031

REACTIONS (9)
  - Apnoea [Recovered/Resolved]
  - Bradycardia [Unknown]
  - COVID-19 [Unknown]
  - Haemoglobin abnormal [Unknown]
  - Neutrophil count abnormal [Unknown]
  - Blood creatinine abnormal [Unknown]
  - Alanine aminotransferase abnormal [Unknown]
  - Procalcitonin abnormal [Unknown]
  - Off label use [Unknown]

NARRATIVE: CASE EVENT DATE: 20221031
